FAERS Safety Report 6832708-2 (Version None)
Quarter: 2010Q3

REPORT INFORMATION
  Report Type: 
  Country: None (occurrence: None)
  Receive Date: 20100712
  Receipt Date: 20070819
  Transmission Date: 20110219
  Serious: No
  Sender: FDA-Public Use
  Company Number: US-PFIZER INC-2007021418

PATIENT
  Sex: Female
  Weight: 66.22 kg

DRUGS (5)
  1. CHANTIX [Suspect]
     Indication: SMOKING CESSATION THERAPY
     Route: 048
     Dates: start: 20070101
  2. PAXIL [Concomitant]
     Route: 048
  3. ESTRATEST [Concomitant]
     Route: 048
  4. VITAMINS [Concomitant]
  5. ACETYLSALICYLIC ACID [Concomitant]

REACTIONS (3)
  - DYSGEUSIA [None]
  - FATIGUE [None]
  - SOMNOLENCE [None]
